FAERS Safety Report 19939509 (Version 7)
Quarter: 2022Q1

REPORT INFORMATION
  Report Type: Report from Study
  Country: US (occurrence: US)
  Receive Date: 20211011
  Receipt Date: 20220121
  Transmission Date: 20220423
  Serious: Yes (Other)
  Sender: FDA-Public Use
  Company Number: NVSC2021US232385

PATIENT
  Sex: Male

DRUGS (1)
  1. ENTRESTO [Suspect]
     Active Substance: SACUBITRIL\VALSARTAN
     Indication: Product used for unknown indication
     Dosage: UNK, BID
     Route: 048
     Dates: start: 20211001

REACTIONS (14)
  - Carotid artery occlusion [Unknown]
  - Nocturia [Unknown]
  - Weight decreased [Unknown]
  - Peripheral swelling [Recovering/Resolving]
  - Throat clearing [Unknown]
  - Nonspecific reaction [Unknown]
  - Extrasystoles [Unknown]
  - Blood glucose decreased [Recovering/Resolving]
  - Influenza like illness [Unknown]
  - Abdominal discomfort [Unknown]
  - Neck pain [Unknown]
  - Arthralgia [Unknown]
  - Ill-defined disorder [Unknown]
  - Cough [Unknown]
